FAERS Safety Report 5694464-3 (Version None)
Quarter: 2008Q2

REPORT INFORMATION
  Report Type: 
  Country: None (occurrence: None)
  Receive Date: 20080404
  Receipt Date: 20080401
  Transmission Date: 20081010
  Serious: Yes (Life-Threatening)
  Sender: FDA-Public Use
  Company Number: JP-BRISTOL-MYERS SQUIBB COMPANY-14113641

PATIENT
  Age: 17 Year
  Sex: Male

DRUGS (5)
  1. VEPESID [Suspect]
     Indication: EWING'S SARCOMA
     Route: 041
     Dates: start: 20060427, end: 20070228
  2. ONCOVIN [Concomitant]
     Route: 042
  3. DOXORUBICIN HCL [Concomitant]
     Route: 042
  4. ENDOXAN [Concomitant]
     Route: 065
  5. IFOMIDE [Concomitant]
     Route: 042

REACTIONS (1)
  - ACUTE LYMPHOCYTIC LEUKAEMIA [None]
